FAERS Safety Report 9556074 (Version 1)
Quarter: 2013Q3

REPORT INFORMATION
  Report Type: Spontaneous
  Country: US (occurrence: None)
  Receive Date: 20130724
  Receipt Date: 20130724
  Transmission Date: 20140515
  Serious: No
  Sender: FDA-Public Use
  Company Number: PHEH2013US006825

PATIENT
  Age: 44 Year
  Sex: Female

DRUGS (3)
  1. GILENYA (FINGOLIMOD) CAPSULE, 0.5MG [Suspect]
     Dosage: 0.5 MG, UNK, ORAL
     Route: 048
  2. VALIUM (DIAZEPAM) [Concomitant]
  3. VICODIN (HYDROCODONE BARTRATE , PARACETAMOL) [Concomitant]

REACTIONS (5)
  - Hepatic enzyme increased [None]
  - Fatigue [None]
  - Fall [None]
  - Muscle spasms [None]
  - Pain in extremity [None]
